FAERS Safety Report 24112534 (Version 1)
Quarter: 2024Q3

REPORT INFORMATION
  Report Type: Report from Study
  Country: US (occurrence: None)
  Receive Date: 20240719
  Receipt Date: 20240719
  Transmission Date: 20241017
  Serious: Yes (Other)
  Sender: ASTRAZENECA
  Company Number: 2020SE92823

PATIENT
  Age: 84 Year
  Sex: Female

DRUGS (10)
  1. METOPROLOL [Suspect]
     Active Substance: METOPROLOL
  2. CALQUENCE [Suspect]
     Active Substance: ACALABRUTINIB
     Indication: Mantle cell lymphoma
     Route: 048
     Dates: start: 20190702
  3. XARELTO [Suspect]
     Active Substance: RIVAROXABAN
     Route: 065
  4. ALLOPURINOL [Concomitant]
     Active Substance: ALLOPURINOL
  5. CARDIZEM CD [Concomitant]
     Active Substance: DILTIAZEM HYDROCHLORIDE
  6. EFFERVESCENT POTASSIUM [Concomitant]
  7. GAZYVA [Concomitant]
     Active Substance: OBINUTUZUMAB
  8. LASIX [Concomitant]
     Active Substance: FUROSEMIDE
  9. PANTOPRAZOLE SODIUM [Concomitant]
     Active Substance: PANTOPRAZOLE SODIUM
  10. ZOCOR [Concomitant]
     Active Substance: SIMVASTATIN

REACTIONS (6)
  - Hypertrophic cardiomyopathy [Unknown]
  - Atrial fibrillation [Unknown]
  - Eye contusion [Unknown]
  - Contusion [Recovered/Resolved]
  - Muscle disorder [Unknown]
  - Drug intolerance [Unknown]
